FAERS Safety Report 9351166 (Version 5)
Quarter: 2014Q1

REPORT INFORMATION
  Report Type: Spontaneous
  Country: US (occurrence: US)
  Receive Date: 20130617
  Receipt Date: 20140225
  Transmission Date: 20141002
  Serious: Yes (Hospitalization, Disabling, Other)
  Sender: FDA-Public Use
  Company Number: US-009507513-1306USA006612

PATIENT
  Sex: Female
  Weight: 45.81 kg

DRUGS (24)
  1. FOSAMAX [Suspect]
     Indication: OSTEOPOROSIS
     Dosage: 70 MG, QW
     Route: 048
     Dates: start: 20021104, end: 200803
  2. FOSAMAX [Suspect]
     Indication: OSTEOPENIA
  3. ALENDRONATE SODIUM [Suspect]
     Indication: OSTEOPOROSIS
     Dosage: 70 MG, QW
     Route: 048
     Dates: start: 200803, end: 201103
  4. ALENDRONATE SODIUM [Suspect]
     Indication: OSTEOPENIA
  5. VITAMINS (UNSPECIFIED) [Concomitant]
     Dosage: UNK, QD
  6. OMEGA-3 MARINE TRIGLYCERIDES [Concomitant]
     Dosage: UNK, QD
  7. LYSINE [Concomitant]
     Dosage: UNK, QD
  8. MENATETRENONE [Concomitant]
     Dosage: UNK, QD
  9. IRON (UNSPECIFIED) [Concomitant]
     Dosage: 325 MG, BID
  10. ASPIRIN [Concomitant]
     Dosage: 8 MG, QD
  11. CALCIUM (UNSPECIFIED) [Concomitant]
     Dosage: UNK, QD
  12. MAGNESIUM (UNSPECIFIED) [Concomitant]
     Dosage: UNK, QD
  13. VITAMIN E [Concomitant]
     Dosage: UNK, QD
  14. VITAMIN B (UNSPECIFIED) [Concomitant]
     Dosage: UNK, QD
  15. ASCORBIC ACID [Concomitant]
     Dosage: 500 MG, BID
  16. GLUCOSAMINE [Concomitant]
     Dosage: UNK, QD
  17. CHONDROITIN [Concomitant]
     Dosage: UNK, QD
  18. VITAMIN A [Concomitant]
     Dosage: UNK, QD
     Dates: start: 1970
  19. VITAMIN D (UNSPECIFIED) [Concomitant]
     Dosage: UNK, QD
     Dates: start: 1970
  20. BETA CAROTENE [Concomitant]
     Dosage: UNK, QD
     Dates: start: 1970
  21. POTASSIUM (UNSPECIFIED) [Concomitant]
     Dosage: UNK, QD
     Dates: start: 1970
  22. SELENIUM (UNSPECIFIED) [Concomitant]
     Dosage: UNK, QD
     Dates: start: 1970
  23. AMINO ACIDS (UNSPECIFIED) [Concomitant]
     Dosage: UNK, QD
     Dates: start: 1970
  24. ZINC (UNSPECIFIED) [Concomitant]
     Dosage: UNK, QD

REACTIONS (42)
  - Femur fracture [Recovering/Resolving]
  - Intramedullary rod insertion [Unknown]
  - Knee arthroplasty [Unknown]
  - Intervertebral disc operation [Unknown]
  - Spinal fusion surgery [Unknown]
  - Spinal rod insertion [Unknown]
  - Spinal laminectomy [Unknown]
  - Shoulder arthroplasty [Unknown]
  - Bone density decreased [Unknown]
  - Spinal osteoarthritis [Unknown]
  - Intervertebral disc degeneration [Unknown]
  - Scoliosis [Unknown]
  - Anaemia postoperative [Unknown]
  - Leukocytosis [Unknown]
  - Haemorrhagic anaemia [Unknown]
  - Hysterectomy [Unknown]
  - Appendicectomy [Unknown]
  - Device related infection [Unknown]
  - Delusion [Unknown]
  - Faecaloma [Recovering/Resolving]
  - Depression [Unknown]
  - Exostosis [Unknown]
  - Bone formation increased [Unknown]
  - Osteoarthritis [Unknown]
  - Exostosis [Unknown]
  - Osteoarthritis [Unknown]
  - Osteoarthritis [Unknown]
  - Spondylolisthesis [Unknown]
  - Exostosis [Unknown]
  - Shoulder operation [Unknown]
  - Bursitis [Unknown]
  - X-ray limb abnormal [Unknown]
  - Osteoarthritis [Unknown]
  - Arthritis [Unknown]
  - Joint dislocation [Unknown]
  - Loose body in joint [Unknown]
  - Bursitis [Unknown]
  - Tendonitis [Unknown]
  - Hypoaesthesia [Unknown]
  - Fatigue [Unknown]
  - Myalgia [Unknown]
  - Constipation [Unknown]
